FAERS Safety Report 18822206 (Version 2)
Quarter: 2021Q1

REPORT INFORMATION
  Report Type: Spontaneous
  Country: DE (occurrence: DE)
  Receive Date: 20210202
  Receipt Date: 20210302
  Transmission Date: 20210419
  Serious: Yes (Other)
  Sender: FDA-Public Use
  Company Number: DE-BIOGEN-2021BI00972665

PATIENT
  Sex: Female

DRUGS (1)
  1. FAMPYRA [Suspect]
     Active Substance: DALFAMPRIDINE
     Indication: PRODUCT USED FOR UNKNOWN INDICATION
     Route: 048

REACTIONS (3)
  - Drug dependence [Recovered/Resolved]
  - Multiple sclerosis relapse [Not Recovered/Not Resolved]
  - Therapeutic product effect decreased [Recovered/Resolved]
